FAERS Safety Report 11076945 (Version 2)
Quarter: 2015Q2

REPORT INFORMATION
  Report Type: Spontaneous
  Country: US (occurrence: US)
  Receive Date: 20150429
  Receipt Date: 20150525
  Transmission Date: 20150821
  Serious: No
  Sender: FDA-Public Use
  Company Number: US-JNJFOC-20130710381

PATIENT
  Sex: Female
  Weight: 61.24 kg

DRUGS (4)
  1. COUMADIN [Concomitant]
     Active Substance: WARFARIN SODIUM
     Indication: EMBOLISM
     Dosage: 5 MG SINCE 18 YEARS
     Route: 065
     Dates: start: 1995
  2. IMODIUM A-D [Suspect]
     Active Substance: LOPERAMIDE HYDROCHLORIDE
     Indication: ABDOMINAL DISTENSION
     Route: 048
     Dates: start: 20130228, end: 20130531
  3. IMODIUM A-D [Suspect]
     Active Substance: LOPERAMIDE HYDROCHLORIDE
     Indication: DIARRHOEA
     Route: 048
     Dates: start: 20130228, end: 20130531
  4. TRIAMTERENE. [Concomitant]
     Active Substance: TRIAMTERENE
     Indication: BLOOD PRESSURE
     Dosage: 1 TIME DAILY SINCE 10 YEARS.
     Route: 065
     Dates: start: 2003

REACTIONS (1)
  - Drug ineffective [Unknown]
